FAERS Safety Report 12342783 (Version 1)
Quarter: 2016Q2

REPORT INFORMATION
  Report Type: Report from Study
  Country: TW (occurrence: TW)
  Receive Date: 20160506
  Receipt Date: 20160506
  Transmission Date: 20160815
  Serious: Yes (Hospitalization)
  Sender: FDA-Public Use
  Company Number: TW-DEPOMED, INC.-TW-2016DEP009560

PATIENT

DRUGS (3)
  1. CETUXIMAB W/GEMCITABINE [Suspect]
     Active Substance: CETUXIMAB\GEMCITABINE
     Dosage: 250 MG/M2, UNK, QW
     Route: 042
     Dates: start: 20140916, end: 20141111
  2. DICLOFENAC POTASSIUM. [Suspect]
     Active Substance: DICLOFENAC POTASSIUM
     Indication: ORAL PAIN
     Dosage: 25 MG, TID
     Route: 048
     Dates: start: 20140826, end: 20141115
  3. CETUXIMAB W/GEMCITABINE [Suspect]
     Active Substance: CETUXIMAB\GEMCITABINE
     Indication: SQUAMOUS CELL CARCINOMA OF HEAD AND NECK
     Dosage: 400 MG/M2, QD
     Route: 042
     Dates: start: 20140910, end: 20140910

REACTIONS (2)
  - Lower respiratory tract infection [Recovered/Resolved]
  - Upper gastrointestinal haemorrhage [Recovered/Resolved]

NARRATIVE: CASE EVENT DATE: 20140923
